FAERS Safety Report 9407456 (Version 1)
Quarter: 2013Q3

REPORT INFORMATION
  Report Type: Spontaneous
  Country: US (occurrence: US)
  Receive Date: 20130718
  Receipt Date: 20130718
  Transmission Date: 20140515
  Serious: Yes (Death, Hospitalization)
  Sender: FDA-Public Use
  Company Number: US-PERRIGO-13US007100

PATIENT
  Age: 64 Year
  Sex: Male

DRUGS (1)
  1. MORPHINE SULFATE 20 MG/ML 0L8 [Suspect]
     Indication: COMPLETED SUICIDE
     Dosage: 1.2 G, UNK
     Route: 048

REACTIONS (7)
  - Cardiac arrest [Fatal]
  - Intentional overdose [Fatal]
  - Renal failure acute [Unknown]
  - Oliguria [Unknown]
  - Myoclonus [Unknown]
  - Somnolence [Unknown]
  - Respiratory rate decreased [Unknown]
